FAERS Safety Report 7682176-6 (Version None)
Quarter: 2011Q3

REPORT INFORMATION
  Report Type: 
  Country: None (occurrence: None)
  Receive Date: 20110815
  Receipt Date: 20110727
  Transmission Date: 20111222
  Serious: No
  Sender: FDA-Public Use
  Company Number: US-B.I. PHARMACEUTICALS,INC./RIDGEFIELD-2011-BP-15992BP

PATIENT
  Age: 71 Year
  Sex: Male

DRUGS (16)
  1. LEXAPRO [Concomitant]
     Dosage: 20 MG
  2. NIACIN [Concomitant]
     Dosage: 1000 MG
     Route: 048
  3. MEN'S VITAMIN [Concomitant]
     Route: 048
  4. GRAPE SEED [Concomitant]
     Dosage: 100 MG
     Route: 048
  5. ASPIRIN [Concomitant]
     Dosage: 81 MG
     Route: 048
  6. CO Q 10 [Concomitant]
     Dosage: 100 MG
     Route: 048
  7. PRADAXA [Suspect]
     Indication: ATRIAL FIBRILLATION
     Dosage: 300 MG
     Route: 048
     Dates: start: 20110527
  8. PRADAXA [Suspect]
     Indication: ANTICOAGULANT THERAPY
  9. METROZAL [Concomitant]
  10. WELLBUTRIN [Concomitant]
  11. OSCAL [Concomitant]
     Route: 048
  12. METOPROLOL TARTRATE [Concomitant]
     Indication: HYPERTENSION
     Dosage: 50 MG
     Route: 048
  13. BUPROPION HCL [Concomitant]
     Dosage: 50 MG
     Route: 048
  14. SIMVASTATIN [Concomitant]
     Indication: BLOOD CHOLESTEROL INCREASED
     Dosage: 20 MG
  15. ASCORBIC ACID [Concomitant]
     Dosage: 1000 MG
     Route: 048
  16. MULTIVITAMIN [Concomitant]
     Route: 048

REACTIONS (2)
  - NECK PAIN [None]
  - HEADACHE [None]
